FAERS Safety Report 24832468 (Version 1)
Quarter: 2025Q1

REPORT INFORMATION
  Report Type: Report from Study
  Country: US (occurrence: US)
  Receive Date: 20250110
  Receipt Date: 20250110
  Transmission Date: 20250408
  Serious: Yes (Other)
  Sender: ASTELLAS
  Company Number: US-ASTELLAS-2024-AER-024360

PATIENT
  Sex: Female

DRUGS (3)
  1. GILTERITINIB [Suspect]
     Active Substance: GILTERITINIB
     Indication: Leukaemia
     Dosage: 40 MG X 2 TABLETS
     Route: 048
     Dates: start: 2024
  2. GILTERITINIB [Suspect]
     Active Substance: GILTERITINIB
     Dosage: 40 MG X 2 TABLETS
     Route: 048
     Dates: start: 2024, end: 20241103
  3. VENETOCLAX [Concomitant]
     Active Substance: VENETOCLAX
     Indication: Product used for unknown indication
     Route: 065
     Dates: start: 2024, end: 2024

REACTIONS (3)
  - Platelet count decreased [Unknown]
  - Product use issue [Unknown]
  - Off label use [Unknown]

NARRATIVE: CASE EVENT DATE: 20240101
